FAERS Safety Report 22122977 (Version 3)
Quarter: 2023Q2

REPORT INFORMATION
  Report Type: Report from Study
  Country: RU (occurrence: RU)
  Receive Date: 20230322
  Receipt Date: 20230518
  Transmission Date: 20230721
  Serious: Yes (Death)
  Sender: FDA-Public Use
  Company Number: RU-SECURA BIO, INC.-2023-SECUR-RU000030

PATIENT

DRUGS (1)
  1. DUVELISIB [Suspect]
     Active Substance: DUVELISIB
     Indication: Non-Hodgkin^s lymphoma
     Dosage: 15 MG, BID
     Route: 048
     Dates: start: 20210413, end: 20230311

REACTIONS (1)
  - Septic shock [Fatal]

NARRATIVE: CASE EVENT DATE: 20230314
